FAERS Safety Report 9144005 (Version 3)
Quarter: 2013Q1

REPORT INFORMATION
  Report Type: Report from Study
  Country: HN (occurrence: HN)
  Receive Date: 20130306
  Receipt Date: 20130322
  Transmission Date: 20140127
  Serious: Yes (Hospitalization)
  Sender: FDA-Public Use
  Company Number: HN-ROCHE-1196858

PATIENT
  Age: 37 Year
  Sex: Female

DRUGS (4)
  1. BONVIVA [Suspect]
     Indication: OSTEOPOROSIS
     Route: 048
     Dates: start: 20100701
  2. LIPITOR [Concomitant]
     Indication: DYSLIPIDAEMIA
  3. LEVOTHYROXINE [Concomitant]
     Indication: HYPOTHYROIDISM
  4. FENOFIBRATE [Concomitant]

REACTIONS (1)
  - Appendicitis [Recovered/Resolved]
